FAERS Safety Report 6528995-0 (Version None)
Quarter: 2009Q4

REPORT INFORMATION
  Report Type: 
  Country: None (occurrence: None)
  Receive Date: 20091224
  Receipt Date: 20091217
  Transmission Date: 20100525
  Serious: Yes (Death)
  Sender: FDA-Public Use
  Company Number: 2009JP007734

PATIENT
  Age: 52 Year
  Sex: Male

DRUGS (13)
  1. FUNGUARD (MICAFUNGIN) INJECTION [Suspect]
     Indication: ANTIFUNGAL PROPHYLAXIS
     Dosage: 50 MG, UID/QD, IV DRIP
     Route: 041
     Dates: start: 20090917
  2. DIFLUCAN [Concomitant]
  3. ALKERAN [Concomitant]
  4. METHOTREXATE [Concomitant]
  5. CYCLOSPORINE [Concomitant]
  6. LEVOFLOXACIN [Concomitant]
  7. ZOVIRAX [Concomitant]
  8. URSODIOL [Concomitant]
  9. SELBEX (TEPRENONE) [Concomitant]
  10. LANSOPRAZOLE [Concomitant]
  11. ITRACONAZOLE [Concomitant]
  12. VORICONAZOLE [Concomitant]
  13. AMBISOME [Concomitant]

REACTIONS (2)
  - CANDIDA SEPSIS [None]
  - MULTI-ORGAN FAILURE [None]
